FAERS Safety Report 6516702-7 (Version None)
Quarter: 2009Q4

REPORT INFORMATION
  Report Type: 
  Country: None (occurrence: None)
  Receive Date: 20091223
  Receipt Date: 20091215
  Transmission Date: 20100525
  Serious: Yes (Death)
  Sender: FDA-Public Use
  Company Number: GB-TEVA-218598ISR

PATIENT
  Age: 78 Year
  Sex: Male

DRUGS (1)
  1. RAMIPRIL [Suspect]
     Indication: HYPERTENSION
     Route: 048
     Dates: start: 20091203

REACTIONS (8)
  - ABDOMINAL DISCOMFORT [None]
  - ACUTE MYOCARDIAL INFARCTION [None]
  - DEHYDRATION [None]
  - HYPOTENSION [None]
  - MYOCARDIAL ISCHAEMIA [None]
  - OVERDOSE [None]
  - RENAL FAILURE ACUTE [None]
  - SHOCK [None]
